FAERS Safety Report 7781386-7 (Version None)
Quarter: 2011Q3

REPORT INFORMATION
  Report Type: 
  Country: None (occurrence: None)
  Receive Date: 20110927
  Receipt Date: 20110923
  Transmission Date: 20111222
  Serious: Yes (Other)
  Sender: FDA-Public Use
  Company Number: US-MERCK-1107USA01586

PATIENT
  Age: 81 Year
  Sex: Female

DRUGS (14)
  1. FOSAMAX [Suspect]
     Route: 048
     Dates: start: 20050101, end: 20090101
  2. EVISTA [Concomitant]
     Route: 065
  3. LAMOTRIGINE [Concomitant]
     Route: 065
  4. MEGESTROL ACETATE [Concomitant]
     Route: 065
  5. SIMVASTATIN [Concomitant]
     Route: 065
  6. LEVOTHYROXINE SODIUM [Concomitant]
     Route: 065
  7. CALCIUM (UNSPECIFIED) [Concomitant]
     Route: 065
  8. AMLODIPINE [Concomitant]
     Route: 065
  9. CARVEDILOL [Concomitant]
     Route: 065
  10. LOSARTAN POTASSIUM [Concomitant]
     Route: 065
  11. ASPIRIN [Concomitant]
     Route: 065
  12. MELOXICAM [Concomitant]
     Route: 065
  13. PHENYTOIN [Concomitant]
     Route: 065
  14. ZOLPIDEM TARTRATE [Concomitant]
     Route: 065

REACTIONS (6)
  - BONE DENSITY DECREASED [None]
  - BONE LESION [None]
  - ORAL DISCHARGE [None]
  - OSTEOMYELITIS [None]
  - ORAL INFECTION [None]
  - OSTEONECROSIS OF JAW [None]
